FAERS Safety Report 20489172 (Version 1)
Quarter: 2022Q1

REPORT INFORMATION
  Report Type: Spontaneous
  Country: JP (occurrence: JP)
  Receive Date: 20220218
  Receipt Date: 20220218
  Transmission Date: 20220423
  Serious: Yes (Death)
  Sender: FDA-Public Use
  Company Number: JP-JNJFOC-20220119284

PATIENT
  Age: 8 Decade
  Sex: Female

DRUGS (13)
  1. UPTRAVI [Suspect]
     Active Substance: SELEXIPAG
     Indication: Pulmonary arterial hypertension
     Route: 048
  2. UPTRAVI [Suspect]
     Active Substance: SELEXIPAG
     Route: 048
  3. OPSUMIT [Suspect]
     Active Substance: MACITENTAN
     Indication: Pulmonary arterial hypertension
     Route: 048
  4. OPSUMIT [Suspect]
     Active Substance: MACITENTAN
     Route: 048
  5. ADCIRCA [Suspect]
     Active Substance: TADALAFIL
     Indication: Pulmonary arterial hypertension
     Route: 048
  6. ADCIRCA [Suspect]
     Active Substance: TADALAFIL
     Route: 048
  7. FUROSEMIDE [Concomitant]
     Active Substance: FUROSEMIDE
  8. SPIRONOLACTONE [Concomitant]
     Active Substance: SPIRONOLACTONE
  9. BISOPROLOL [Concomitant]
     Active Substance: BISOPROLOL
  10. ELIQUIS [Concomitant]
     Active Substance: APIXABAN
  11. MOSAPRIDE CITRATE [Concomitant]
     Active Substance: MOSAPRIDE CITRATE
  12. TOLVAPTAN [Concomitant]
     Active Substance: TOLVAPTAN
  13. ADEMPAS [Concomitant]
     Active Substance: RIOCIGUAT
     Indication: Pulmonary arterial hypertension

REACTIONS (4)
  - Respiratory failure [Fatal]
  - Palpitations [Unknown]
  - Dyspnoea [Unknown]
  - Off label use [Unknown]
